FAERS Safety Report 25255650 (Version 9)
Quarter: 2025Q4

REPORT INFORMATION
  Report Type: Report from Study
  Country: US (occurrence: US)
  Receive Date: 20250430
  Receipt Date: 20251224
  Transmission Date: 20260118
  Serious: Yes (Hospitalization)
  Sender: ABBVIE
  Company Number: US-ABBVIE-6175534

PATIENT
  Age: 62 Year
  Sex: Female
  Weight: 67 kg

DRUGS (6)
  1. RINVOQ [Suspect]
     Active Substance: UPADACITINIB
     Indication: Rheumatoid arthritis
     Route: 048
  2. RINVOQ [Suspect]
     Active Substance: UPADACITINIB
     Indication: Rheumatoid arthritis
     Dosage: STRENGTH:15MG;
     Route: 048
     Dates: start: 20240821, end: 202501
  3. RINVOQ [Suspect]
     Active Substance: UPADACITINIB
     Indication: Rheumatoid arthritis
     Dosage: STRENGTH: 15MG, THERAPY END DATE 2025
     Route: 048
     Dates: start: 20250305
  4. RINVOQ [Suspect]
     Active Substance: UPADACITINIB
     Indication: Rheumatoid arthritis
     Dosage: STRENGTH 15 MG
     Route: 048
     Dates: start: 20250506, end: 2025
  5. MELOXICAM [Concomitant]
     Active Substance: MELOXICAM
     Indication: Rheumatoid arthritis
     Route: 048
  6. METHOTREXATE SODIUM [Concomitant]
     Active Substance: METHOTREXATE SODIUM
     Indication: Rheumatoid arthritis
     Dosage: STRENGTH: 2.5 MG
     Route: 048

REACTIONS (37)
  - Vomiting [Recovering/Resolving]
  - Klebsiella infection [Unknown]
  - Urinary tract infection [Recovered/Resolved]
  - Influenza [Recovering/Resolving]
  - Bronchitis [Recovering/Resolving]
  - Perineal rash [Not Recovered/Not Resolved]
  - Genital herpes [Not Recovered/Not Resolved]
  - Illness [Unknown]
  - Pain [Unknown]
  - Fatigue [Unknown]
  - Blood cholesterol increased [Unknown]
  - Rash [Not Recovered/Not Resolved]
  - Lethargy [Recovering/Resolving]
  - Pyrexia [Recovering/Resolving]
  - Nausea [Unknown]
  - Dehydration [Unknown]
  - Dermatitis contact [Unknown]
  - Urticaria [Unknown]
  - Pruritus [Unknown]
  - Gastrooesophageal reflux disease [Unknown]
  - Human anaplasmosis [Unknown]
  - Syncope [Unknown]
  - Blood sodium decreased [Unknown]
  - White blood cell count increased [Unknown]
  - Carbon dioxide decreased [Unknown]
  - Red blood cell count decreased [Unknown]
  - Lymphocyte count decreased [Unknown]
  - Neutrophil count increased [Unknown]
  - Fall [Unknown]
  - Mean cell volume increased [Unknown]
  - Mean platelet volume decreased [Unknown]
  - Feeling hot [Unknown]
  - Dizziness [Unknown]
  - Inappropriate schedule of product administration [Unknown]
  - Herpes virus infection [Recovered/Resolved]
  - Urinary tract infection [Not Recovered/Not Resolved]
  - Rash vesicular [Unknown]

NARRATIVE: CASE EVENT DATE: 20240907
